FAERS Safety Report 7308228-8 (Version None)
Quarter: 2011Q1

REPORT INFORMATION
  Report Type: 
  Country: None (occurrence: None)
  Receive Date: 20110223
  Receipt Date: 20110222
  Transmission Date: 20110831
  Serious: Yes (Other)
  Sender: FDA-Public Use
  Company Number: A0914794A

PATIENT
  Age: 32 Year
  Sex: Male

DRUGS (6)
  1. ALLI [Suspect]
     Indication: WEIGHT LOSS DIET
     Route: 048
  2. MULTI-VITAMIN [Concomitant]
  3. XANAX [Concomitant]
     Indication: ANXIETY
  4. ZYRTEC [Concomitant]
     Indication: MULTIPLE ALLERGIES
  5. PEPCID AC [Concomitant]
  6. ASPIRIN [Concomitant]
     Indication: ANTICOAGULANT THERAPY

REACTIONS (3)
  - ABDOMINAL PAIN [None]
  - FAECES PALE [None]
  - HEPATIC ENZYME INCREASED [None]
